FAERS Safety Report 22527431 (Version 1)
Quarter: 2023Q2

REPORT INFORMATION
  Report Type: Spontaneous
  Country: TH (occurrence: TH)
  Receive Date: 20230606
  Receipt Date: 20230606
  Transmission Date: 20230721
  Serious: Yes (Life-Threatening)
  Sender: FDA-Public Use
  Company Number: TH-BoehringerIngelheim-2023-BI-242143

PATIENT
  Age: 32 Year
  Sex: Male

DRUGS (3)
  1. PRAMIPEXOLE [Suspect]
     Active Substance: PRAMIPEXOLE
     Indication: Parkinson^s disease
     Dosage: IMMEDIATE-RELEASE PRAMIPEXOLE 0.25 MG WAS BEGUN AT HALF A TABLET AND INCREASED ORALLY THREE TIMES A
     Route: 048
  2. PRAMIPEXOLE [Suspect]
     Active Substance: PRAMIPEXOLE
     Dosage: IMMEDIATE-RELEASE PRAMIPEXOLE 0.25 MG WAS BEGUN AT HALF A TABLET AND INCREASED ORALLY THREE TIMES A
     Route: 048
  3. PRAMIPEXOLE [Suspect]
     Active Substance: PRAMIPEXOLE
     Dosage: THE DOSAGE OF PRAMIPEXOLE WAS RAISED TO 3 MG PER DAY AFTER BEING MADE INTO AN EXTENDED-RELEASE FORMA
     Route: 048

REACTIONS (5)
  - Road traffic accident [Unknown]
  - Drug ineffective [Recovering/Resolving]
  - Bradykinesia [Not Recovered/Not Resolved]
  - Somnolence [Unknown]
  - Sudden onset of sleep [Unknown]
